FAERS Safety Report 6622062-3 (Version None)
Quarter: 2010Q1

REPORT INFORMATION
  Report Type: 
  Country: None (occurrence: None)
  Receive Date: 20100223
  Receipt Date: 20091023
  Transmission Date: 20100710
  Serious: No
  Sender: FDA-Public Use
  Company Number: 8053700

PATIENT
  Sex: Female
  Weight: 44.5 kg

DRUGS (7)
  1. CIMZIA [Suspect]
     Indication: CROHN'S DISEASE
     Dosage: (SUBCUTANEOUS)
     Route: 058
  2. LORTAB [Concomitant]
  3. VALIUM [Concomitant]
  4. SEROQUEL [Concomitant]
  5. PREVACID [Concomitant]
  6. PREDNISONE [Concomitant]
  7. AMITRIPTLINE HYDROCHLORIDE TAB [Concomitant]

REACTIONS (5)
  - CHEST PAIN [None]
  - FATIGUE [None]
  - NAUSEA [None]
  - VOMITING [None]
  - WEIGHT DECREASED [None]
